FAERS Safety Report 6003498-0 (Version None)
Quarter: 2008Q4

REPORT INFORMATION
  Report Type: 
  Country: None (occurrence: None)
  Receive Date: 20081215
  Receipt Date: 20081215
  Transmission Date: 20090506
  Serious: No
  Sender: FDA-Public Use
  Company Number: None

PATIENT
  Age: 32 Year
  Sex: Female
  Weight: 61.2356 kg

DRUGS (1)
  1. CEFADROXIL [Suspect]
     Dosage: ONE 2 TIMES DAILY PO
     Route: 048
     Dates: start: 20081211, end: 20081220

REACTIONS (2)
  - COITAL BLEEDING [None]
  - FEAR [None]
